FAERS Safety Report 5788085-1 (Version None)
Quarter: 2008Q2

REPORT INFORMATION
  Report Type: 
  Country: None (occurrence: None)
  Receive Date: 20080625
  Receipt Date: 20080617
  Transmission Date: 20081010
  Serious: Yes (Other)
  Sender: FDA-Public Use
  Company Number: JP-SANOFI-SYNTHELABO-A01200701610

PATIENT
  Sex: Male
  Weight: 68 kg

DRUGS (5)
  1. ISOVORIN [Suspect]
     Route: 041
     Dates: start: 20061124, end: 20061124
  2. CALBLOCK [Concomitant]
     Indication: HYPERTENSION
     Route: 048
  3. ELPLAT [Suspect]
     Indication: RECTAL CANCER
     Route: 042
     Dates: start: 20061124, end: 20061124
  4. FLUOROURACIL [Suspect]
     Dosage: 700 MG/BODY=404.6 MG/M2 IN BOLUS FOLLOWED BY 4250 MG/BODY=2456.6 MG/M2
     Route: 040
     Dates: start: 20061124, end: 20061124
  5. FLUOROURACIL [Suspect]
     Dosage: 700 MG/BODY=404.6 MG/M2 IN BOLUS FOLLOWED BY 4250 MG/BODY=2456.6 MG/M2
     Route: 041
     Dates: start: 20061124, end: 20061125

REACTIONS (3)
  - ANAPHYLACTIC SHOCK [None]
  - MYOCARDIAL ISCHAEMIA [None]
  - NEUTROPENIA [None]
